FAERS Safety Report 18893688 (Version 1)
Quarter: 2021Q1

REPORT INFORMATION
  Report Type: Spontaneous
  Country: US (occurrence: US)
  Receive Date: 20210215
  Receipt Date: 20210215
  Transmission Date: 20210420
  Serious: Yes (Hospitalization, Other)
  Sender: FDA-Public Use
  Company Number: US-PURDUE-USA-2020-0202740

PATIENT
  Sex: Male

DRUGS (8)
  1. OXYCODONE/ ACETAMINOPHEN TABLETS [Suspect]
     Active Substance: ACETAMINOPHEN\OXYCODONE HYDROCHLORIDE
     Indication: PRODUCT USED FOR UNKNOWN INDICATION
     Dosage: UNKNOWN
     Route: 048
  2. OXYCONTIN [Suspect]
     Active Substance: OXYCODONE HYDROCHLORIDE
     Indication: PRODUCT USED FOR UNKNOWN INDICATION
     Dosage: UNKNOWN
     Route: 048
  3. HEROIN [Suspect]
     Active Substance: DIAMORPHINE
     Indication: PRODUCT USED FOR UNKNOWN INDICATION
     Dosage: UNKNOWN
     Route: 042
     Dates: end: 200607
  4. MS CONTIN [Suspect]
     Active Substance: MORPHINE SULFATE
     Indication: PRODUCT USED FOR UNKNOWN INDICATION
     Dosage: UNKNOWN
     Route: 048
  5. COCAINE [Suspect]
     Active Substance: COCAINE
     Indication: PRODUCT USED FOR UNKNOWN INDICATION
     Dosage: UNKNOWN
     Route: 042
     Dates: end: 200607
  6. HYDROCODONE BITARTRATE AND ACETAMINOPHEN [Suspect]
     Active Substance: ACETAMINOPHEN\HYDROCODONE BITARTRATE
     Indication: PRODUCT USED FOR UNKNOWN INDICATION
     Dosage: UNKNOWN
     Route: 048
  7. LORTAB [Suspect]
     Active Substance: ACETAMINOPHEN\HYDROCODONE BITARTRATE
     Indication: PRODUCT USED FOR UNKNOWN INDICATION
     Dosage: UNKNOWN
     Route: 065
  8. FENTANYL. [Suspect]
     Active Substance: FENTANYL
     Indication: PAIN
     Dosage: UNKNOWN
     Route: 065

REACTIONS (29)
  - Gastrooesophageal reflux disease [Unknown]
  - Chronic gastritis [Unknown]
  - Haemorrhoids [Unknown]
  - Chronic hepatitis B [Unknown]
  - Hepatic steatosis [Unknown]
  - Large intestine polyp [Unknown]
  - Cholelithiasis [Unknown]
  - Drug abuse [Unknown]
  - Osteoarthritis [Unknown]
  - Paranoia [Unknown]
  - Hypergammaglobulinaemia [Unknown]
  - Insomnia [Unknown]
  - Diverticulum [Unknown]
  - Barrett^s oesophagus [Unknown]
  - Alcoholism [Unknown]
  - Tinnitus [Unknown]
  - Hiatus hernia [Unknown]
  - Headache [Unknown]
  - Dizziness [Unknown]
  - Panic attack [Unknown]
  - Drug dependence [Unknown]
  - Hepatitis C [Unknown]
  - Back pain [Unknown]
  - Depression [Unknown]
  - Night sweats [Unknown]
  - Essential hypertension [Unknown]
  - Suicidal ideation [None]
  - Splenomegaly [Unknown]
  - Anxiety disorder [Unknown]

NARRATIVE: CASE EVENT DATE: 200605
